FAERS Safety Report 5003413-2 (Version None)
Quarter: 2006Q2

REPORT INFORMATION
  Report Type: 
  Country: None (occurrence: None)
  Receive Date: 20060511
  Receipt Date: 20060501
  Transmission Date: 20061013
  Serious: Yes (Other)
  Sender: FDA-Public Use
  Company Number: 13978

PATIENT
  Age: 82 Year
  Sex: Female

DRUGS (2)
  1. AMIODARONE [Suspect]
     Indication: ATRIAL FIBRILLATION
     Dosage: 600 MG DAILY
     Dates: start: 20030101, end: 20040101
  2. AMIODARONE [Suspect]
     Indication: ATRIAL FIBRILLATION
     Dosage: 200 MG DAILY
     Dates: start: 20040101, end: 20050801

REACTIONS (12)
  - ASTIGMATISM [None]
  - CATARACT [None]
  - CHORIORETINITIS [None]
  - CORNEAL OPACITY [None]
  - DRUG TOXICITY [None]
  - KERATITIS [None]
  - KERATOPATHY [None]
  - MACULOPATHY [None]
  - PHOTOPHOBIA [None]
  - REFUSAL OF TREATMENT BY PATIENT [None]
  - RETINOPATHY HYPERTENSIVE [None]
  - SCOTOMA [None]
